FAERS Safety Report 10205085 (Version 2)
Quarter: 2014Q2

REPORT INFORMATION
  Report Type: Spontaneous
  Country: US (occurrence: US)
  Receive Date: 20140529
  Receipt Date: 20140529
  Transmission Date: 20141212
  Serious: Yes (Hospitalization)
  Sender: FDA-Public Use
  Company Number: US-B.I. PHARMACEUTICALS,INC./RIDGEFIELD-2013-BI-37008BP

PATIENT
  Age: 67 Year
  Sex: Male
  Weight: 92.99 kg

DRUGS (2)
  1. PRADAXA [Suspect]
     Indication: ANTICOAGULANT THERAPY
     Dosage: 300 MG
     Route: 048
     Dates: start: 20101228, end: 20110316
  2. LISINOPRIL [Concomitant]
     Route: 065
     Dates: start: 201010, end: 201106

REACTIONS (1)
  - Lower gastrointestinal haemorrhage [Unknown]
